FAERS Safety Report 11490830 (Version 1)
Quarter: 2015Q3

REPORT INFORMATION
  Report Type: Report from Study
  Country: DE (occurrence: DE)
  Receive Date: 20150910
  Receipt Date: 20150910
  Transmission Date: 20151125
  Serious: Yes (Hospitalization, Other)
  Sender: FDA-Public Use
  Company Number: DE-CELGENE-062-21880-09020892

PATIENT
  Age: 80 Year
  Sex: Female

DRUGS (2)
  1. REVLIMID [Suspect]
     Active Substance: LENALIDOMIDE
     Indication: HODGKIN^S DISEASE
     Dosage: 5 MILLIGRAM
     Route: 048
     Dates: start: 20090112, end: 20090114
  2. IXOTEN [Suspect]
     Active Substance: TROFOSFAMIDE
     Indication: HODGKIN^S DISEASE
     Route: 065
     Dates: start: 200901

REACTIONS (2)
  - Herpes zoster [Recovered/Resolved]
  - Macular degeneration [Recovered/Resolved]

NARRATIVE: CASE EVENT DATE: 20090114
